FAERS Safety Report 14558877 (Version 1)
Quarter: 2018Q1

REPORT INFORMATION
  Report Type: Spontaneous
  Country: AU (occurrence: AU)
  Receive Date: 20180221
  Receipt Date: 20180221
  Transmission Date: 20180509
  Serious: Yes (Other)
  Sender: FDA-Public Use
  Company Number: AU-LPDUSPRD-20180179

PATIENT
  Age: 34 Year
  Sex: Male

DRUGS (1)
  1. FERINJECT [Suspect]
     Active Substance: FERRIC CARBOXYMALTOSE
     Dosage: UNKNOWN
     Route: 041
     Dates: start: 20180125

REACTIONS (14)
  - Eye pain [Recovering/Resolving]
  - Pruritus [Recovered/Resolved]
  - Head discomfort [Recovering/Resolving]
  - Pain in jaw [Recovering/Resolving]
  - Vomiting [Recovering/Resolving]
  - Ocular hyperaemia [Recovering/Resolving]
  - Discomfort [Recovering/Resolving]
  - Viral infection [Unknown]
  - Dehydration [Recovering/Resolving]
  - Headache [Recovering/Resolving]
  - Erythema [Recovered/Resolved]
  - Diarrhoea [Recovered/Resolved with Sequelae]
  - Dyspnoea [Recovering/Resolving]
  - Pyrexia [Recovering/Resolving]

NARRATIVE: CASE EVENT DATE: 2018
